FAERS Safety Report 9492465 (Version 1)
Quarter: 2013Q3

REPORT INFORMATION
  Report Type: Spontaneous
  Country: US (occurrence: US)
  Receive Date: 20130830
  Receipt Date: 20130830
  Transmission Date: 20140515
  Serious: No
  Sender: FDA-Public Use
  Company Number: US-009507513-1308USA014752

PATIENT
  Sex: Female

DRUGS (2)
  1. PEGINTRON [Suspect]
     Indication: HEPATITIS C
     Dosage: REDIPEN
     Dates: start: 20130714
  2. REBETOL [Suspect]
     Indication: HEPATITIS C
     Dosage: UNK
     Dates: start: 20130714

REACTIONS (8)
  - Pain [Unknown]
  - Arthralgia [Unknown]
  - Chills [Unknown]
  - Headache [Unknown]
  - Diarrhoea [Unknown]
  - Influenza like illness [Unknown]
  - Nausea [Unknown]
  - Depression [Unknown]
